FAERS Safety Report 7439956-1 (Version None)
Quarter: 2011Q2

REPORT INFORMATION
  Report Type: 
  Country: None (occurrence: None)
  Receive Date: 20110427
  Receipt Date: 20110414
  Transmission Date: 20111010
  Serious: Yes (Other)
  Sender: FDA-Public Use
  Company Number: PHHY2011US00573

PATIENT
  Sex: Female

DRUGS (15)
  1. AFINITOR [Suspect]
     Indication: TUBEROUS SCLEROSIS
     Dosage: 5 MG, DAILY
     Route: 048
     Dates: start: 20101227
  2. MULTI-VITAMINS [Concomitant]
  3. VITAMIN B-12 [Concomitant]
  4. POTASSIUM [Concomitant]
  5. MAGNESIUM [Concomitant]
  6. TOPAMAX [Concomitant]
  7. KLONOPIN [Concomitant]
  8. DOXEPIN [Concomitant]
  9. RUFINAMIDE [Concomitant]
  10. CALCIUM [Concomitant]
  11. FIBER [Concomitant]
     Dosage: UNK
  12. LAMOTRIGINE [Concomitant]
  13. VITAMIN D [Concomitant]
  14. PROGESTERONE [Concomitant]
  15. ZINC [Concomitant]

REACTIONS (5)
  - PINEAL GLAND CYST [None]
  - BRAIN MASS [None]
  - ATONIC SEIZURES [None]
  - RASH [None]
  - NAUSEA [None]
